FAERS Safety Report 6046354-4 (Version None)
Quarter: 2009Q1

REPORT INFORMATION
  Report Type: 
  Country: None (occurrence: None)
  Receive Date: 20090122
  Receipt Date: 20090113
  Transmission Date: 20090719
  Serious: Yes (Death, Hospitalization, Other)
  Sender: FDA-Public Use
  Company Number: US-WYE-H07661409

PATIENT
  Sex: Male

DRUGS (4)
  1. TORISEL [Suspect]
     Indication: RENAL CELL CARCINOMA
     Route: 042
     Dates: start: 20081203, end: 20081217
  2. BACTRIM [Concomitant]
     Indication: INFECTION
     Dosage: NOT PROVIDED
  3. ZOFRAN [Concomitant]
     Indication: NAUSEA
     Dosage: AS NEEDED
  4. OXYCONTIN [Concomitant]
     Indication: PAIN
     Dosage: AS NEEDED (DOSE NOT PROVIDED)

REACTIONS (4)
  - GASTROINTESTINAL HAEMORRHAGE [None]
  - MYOCARDIAL INFARCTION [None]
  - PLEURAL EFFUSION [None]
  - RENAL FAILURE [None]
